FAERS Safety Report 9060811 (Version 1)
Quarter: 2013Q1

REPORT INFORMATION
  Report Type: Report from Study
  Country: BE (occurrence: DE)
  Receive Date: 20130204
  Receipt Date: 20130204
  Transmission Date: 20140127
  Serious: Yes (Hospitalization, Disabling)
  Sender: FDA-Public Use
  Company Number: BE-009507513-1302DEU000136

PATIENT
  Age: 18 Year
  Sex: Female

DRUGS (4)
  1. INVANZ [Suspect]
     Indication: ABDOMINAL ABSCESS
     Dosage: 1 G, QD
     Route: 042
     Dates: start: 20070824, end: 20070831
  2. TRAMADOL HYDROCHLORIDE [Concomitant]
     Indication: PAIN
     Dosage: UNK
     Dates: start: 20070824, end: 20070826
  3. PARACETAMOL ARROW [Concomitant]
     Indication: PAIN
     Dosage: UNK
     Dates: start: 20070718, end: 20070722
  4. ENOXAPARIN SODIUM [Concomitant]
     Indication: PROPHYLAXIS
     Dosage: UNK
     Dates: start: 20070824, end: 20070825

REACTIONS (1)
  - Appendiceal abscess [Recovered/Resolved]
